FAERS Safety Report 13615298 (Version 1)
Quarter: 2017Q2

REPORT INFORMATION
  Report Type: Spontaneous
  Country: US (occurrence: US)
  Receive Date: 20170605
  Receipt Date: 20170605
  Transmission Date: 20170830
  Serious: Yes (Life-Threatening, Hospitalization)
  Sender: FDA-Public Use
  Company Number: None

PATIENT
  Age: 80 Year
  Sex: Male

DRUGS (2)
  1. ETOPOSIDE. [Suspect]
     Active Substance: ETOPOSIDE
     Dosage: 180 MG OTHER IV
     Route: 042
     Dates: start: 20130312
  2. CISPLATIN. [Suspect]
     Active Substance: CISPLATIN
     Indication: NEOPLASM MALIGNANT
     Dosage: 144 MG OTHER IV
     Route: 042
     Dates: start: 20130312

REACTIONS (3)
  - Hypophagia [None]
  - Pancytopenia [None]
  - Decreased appetite [None]

NARRATIVE: CASE EVENT DATE: 20130319
